FAERS Safety Report 8575670-7 (Version None)
Quarter: 2012Q3

REPORT INFORMATION
  Report Type: 
  Country: None (occurrence: None)
  Receive Date: 20120807
  Receipt Date: 20120802
  Transmission Date: 20120928
  Serious: Yes (Hospitalization, Other)
  Sender: FDA-Public Use
  Company Number: PHHY2012BR057950

PATIENT
  Age: 74 Year
  Sex: Female

DRUGS (3)
  1. DIOVAN [Suspect]
     Indication: HYPERTENSION
     Dosage: 1 DF (160 MG), QD
     Route: 048
     Dates: start: 20110101
  2. DORFLEX [Concomitant]
     Indication: ARTHRITIS
  3. DORFLEX [Concomitant]
     Indication: PAIN

REACTIONS (7)
  - CORONARY ANGIOPLASTY [None]
  - CORONARY ARTERY OCCLUSION [None]
  - NECROSIS [None]
  - CHEST PAIN [None]
  - VEIN DISORDER [None]
  - PROCEDURAL COMPLICATION [None]
  - ANGINA PECTORIS [None]
